FAERS Safety Report 9315147 (Version 1)
Quarter: 2013Q2

REPORT INFORMATION
  Report Type: Spontaneous
  Country: US (occurrence: US)
  Receive Date: 20130529
  Receipt Date: 20130529
  Transmission Date: 20140414
  Serious: No
  Sender: FDA-Public Use
  Company Number: US-ALLERGAN-1205666US

PATIENT
  Age: 74 Year
  Sex: Male

DRUGS (9)
  1. ZYMAXID [Suspect]
     Indication: PREOPERATIVE CARE
     Dosage: 1 DROP TO LEFT EYE, TID
     Route: 047
     Dates: start: 20120416
  2. ZYMAXID [Suspect]
     Dosage: 1 DROP TO HIS LEFT EYE, QID
     Route: 047
     Dates: start: 20120407, end: 20120416
  3. SINGULAR [Concomitant]
     Indication: ASTHMA
     Dosage: UNK
  4. FLOVENT [Concomitant]
     Indication: ASTHMA
     Dosage: UNK
  5. AVODART [Concomitant]
     Indication: PRODUCT USED FOR UNKNOWN INDICATION
     Dosage: UNK
  6. FLOMAX [Concomitant]
     Indication: PROSTATIC DISORDER
     Dosage: UNK
  7. NEXIUM [Concomitant]
     Indication: GASTROOESOPHAGEAL REFLUX DISEASE
     Dosage: UNK
  8. ASA [Concomitant]
     Indication: PRODUCT USED FOR UNKNOWN INDICATION
     Dosage: 81 MG, UNK
  9. MULTIVITAMIN [Concomitant]
     Indication: PRODUCT USED FOR UNKNOWN INDICATION
     Dosage: UNK

REACTIONS (10)
  - Nasopharyngitis [Recovered/Resolved]
  - Oropharyngeal pain [Not Recovered/Not Resolved]
  - Respiratory tract congestion [Recovered/Resolved]
  - Secretion discharge [Recovered/Resolved]
  - Cough [Recovered/Resolved]
  - Sneezing [Recovered/Resolved]
  - Oropharyngeal pain [Recovered/Resolved]
  - Throat irritation [Recovered/Resolved]
  - Oropharyngeal pain [Not Recovered/Not Resolved]
  - Pharyngeal erythema [Not Recovered/Not Resolved]
